FAERS Safety Report 5329264-7 (Version None)
Quarter: 2007Q2

REPORT INFORMATION
  Report Type: 
  Country: None (occurrence: None)
  Receive Date: 20070518
  Receipt Date: 20070509
  Transmission Date: 20071010
  Serious: Yes (Hospitalization)
  Sender: FDA-Public Use
  Company Number: US-PFIZER INC-2007037819

PATIENT
  Sex: Female
  Weight: 93 kg

DRUGS (7)
  1. AROMASIN [Suspect]
     Indication: BREAST CANCER
     Route: 048
     Dates: start: 20050425, end: 20060208
  2. IMDUR [Concomitant]
     Dosage: DAILY DOSE:30MG-FREQ:DAILY
     Route: 048
  3. TYLENOL [Concomitant]
     Dosage: FREQ:PRN
     Route: 048
  4. DYAZIDE [Concomitant]
  5. LOPRESSOR [Concomitant]
     Route: 048
  6. LASIX [Concomitant]
     Dosage: DAILY DOSE:20MG-FREQ:DAILY
     Route: 048
  7. AMARYL [Concomitant]

REACTIONS (1)
  - DEEP VEIN THROMBOSIS [None]
